FAERS Safety Report 25435623 (Version 1)
Quarter: 2025Q2

REPORT INFORMATION
  Report Type: Spontaneous
  Country: US (occurrence: US)
  Receive Date: 20250613
  Receipt Date: 20250613
  Transmission Date: 20250716
  Serious: No
  Sender: INCYTE
  Company Number: US-EVENT-003045

PATIENT
  Age: 62 Year

DRUGS (1)
  1. OPZELURA [Suspect]
     Active Substance: RUXOLITINIB PHOSPHATE
     Dosage: 1.5 PERCENT, APPLY A THIN LAYER TO AFFECTED AREA(S) TWICE DAILY UP TO 10% BSA
     Route: 065

REACTIONS (1)
  - Drug effect less than expected [Unknown]
